FAERS Safety Report 12634137 (Version 1)
Quarter: 2016Q3

REPORT INFORMATION
  Report Type: Spontaneous
  Country: US (occurrence: US)
  Receive Date: 20160808
  Receipt Date: 20160808
  Transmission Date: 20161109
  Serious: No
  Sender: FDA-Public Use
  Company Number: US-BEH-2016071939

PATIENT
  Sex: Male
  Weight: 94.33 kg

DRUGS (2)
  1. HUMATE-P [Suspect]
     Active Substance: HUMAN COAGULATION FACTOR VIII/VON WILLEBRAND FACTOR COMPLEX
     Indication: SURGERY
  2. HUMATE-P [Suspect]
     Active Substance: HUMAN COAGULATION FACTOR VIII/VON WILLEBRAND FACTOR COMPLEX
     Indication: VON WILLEBRAND^S DISEASE
     Dosage: 3754 RCOF UNITS (2 VIALS INTRAVENOUS PUSH) ONCE DAILY FOR 2 DAYS AFTER SURGERY
     Route: 042
     Dates: start: 20160315, end: 20160316

REACTIONS (2)
  - Urticaria [Recovering/Resolving]
  - Paraesthesia [Recovering/Resolving]
